FAERS Safety Report 4281766-0 (Version None)
Quarter: 2004Q1

REPORT INFORMATION
  Report Type: 
  Country: None (occurrence: None)
  Receive Date: 20040128
  Receipt Date: 20040116
  Transmission Date: 20041129
  Serious: Yes (Hospitalization)
  Sender: FDA-Public Use
  Company Number: LBID00204000185

PATIENT
  Age: 32 Year
  Sex: Female

DRUGS (1)
  1. LITHIUM CARBONATE [Suspect]
     Indication: BIPOLAR DISORDER
     Dosage: DAILY PO
     Route: 048

REACTIONS (26)
  - ARTHRALGIA [None]
  - BLOOD AMYLASE INCREASED [None]
  - BLOOD CHLORIDE DECREASED [None]
  - BLOOD GLUCOSE INCREASED [None]
  - BLOOD POTASSIUM DECREASED [None]
  - BODY TEMPERATURE INCREASED [None]
  - CEREBELLAR ATAXIA [None]
  - DEPRESSED LEVEL OF CONSCIOUSNESS [None]
  - GLOMERULOSCLEROSIS [None]
  - HAEMODIALYSIS [None]
  - HYPERCALCAEMIA [None]
  - LIPASE INCREASED [None]
  - NEPHRITIS INTERSTITIAL [None]
  - OCCULT BLOOD POSITIVE [None]
  - PARKINSONISM [None]
  - PLATELET COUNT INCREASED [None]
  - POLYURIA [None]
  - PROTEINURIA [None]
  - RASH [None]
  - RENAL FAILURE ACUTE [None]
  - RESPIRATORY RATE INCREASED [None]
  - RHABDOMYOLYSIS [None]
  - SINUS TACHYCARDIA [None]
  - SOMNOLENCE [None]
  - THERAPEUTIC AGENT TOXICITY [None]
  - WHITE BLOOD CELL COUNT INCREASED [None]
